FAERS Safety Report 9316335 (Version 1)
Quarter: 2013Q2

REPORT INFORMATION
  Report Type: Spontaneous
  Country: GB (occurrence: None)
  Receive Date: 20130522
  Receipt Date: 20130522
  Transmission Date: 20140414
  Serious: Yes (Hospitalization)
  Sender: FDA-Public Use
  Company Number: GB-DEXPHARM-20130224

PATIENT
  Age: 65 Year
  Sex: Male

DRUGS (4)
  1. OMEPRAZOLE [Suspect]
     Dosage: DOSE: 20 MG MILLGRAM(S) ?SEP. DOSAGES /INTERVAL: 1 IN 1 DAYS
     Route: 048
  2. AMLODIPINE [Concomitant]
  3. ATORVASTAIN [Concomitant]
  4. CODEINE [Concomitant]

REACTIONS (3)
  - Hyponatraemia [None]
  - Syncope [None]
  - Thrombocytopenia [None]
